FAERS Safety Report 10639368 (Version 2)
Quarter: 2014Q4

REPORT INFORMATION
  Report Type: Report from Study
  Country: US (occurrence: US)
  Receive Date: 20141208
  Receipt Date: 20141208
  Transmission Date: 20150529
  Serious: Yes (Death, Hospitalization)
  Sender: FDA-Public Use
  Company Number: US-MYLANLABS-2014M1013040

PATIENT

DRUGS (3)
  1. CRIZOTINIB [Suspect]
     Active Substance: CRIZOTINIB
     Indication: SYNOVIAL SARCOMA
     Dosage: 2400 MG, BID, DAYS 1-21
     Route: 048
     Dates: start: 20141118, end: 20141124
  2. CYCLOPHOSPHAMIDE. [Suspect]
     Active Substance: CYCLOPHOSPHAMIDE
     Indication: SYNOVIAL SARCOMA
     Dosage: 2260 MG, QD, DAYS 1-5
     Dates: start: 20141118
  3. TOPOTECAN [Suspect]
     Active Substance: TOPOTECAN\TOPOTECAN HYDROCHLORIDE
     Indication: SYNOVIAL SARCOMA
     Dosage: 7 MG, QD, ON DAYS 1-5
     Dates: start: 20141118

REACTIONS (5)
  - Dyspnoea [Fatal]
  - Acidosis [Fatal]
  - Hypoxia [Fatal]
  - Cough [Fatal]
  - Respiratory failure [Fatal]

NARRATIVE: CASE EVENT DATE: 20141123
